FAERS Safety Report 17291980 (Version 2)
Quarter: 2020Q1

REPORT INFORMATION
  Report Type: Spontaneous
  Country: US (occurrence: US)
  Receive Date: 20200121
  Receipt Date: 20200226
  Transmission Date: 20200409
  Serious: Yes (Other)
  Sender: FDA-Public Use
  Company Number: US-BAYER-2019-218216

PATIENT
  Age: 30 Year
  Sex: Female
  Weight: 86.17 kg

DRUGS (2)
  1. METFORMIN [Concomitant]
     Active Substance: METFORMIN HYDROCHLORIDE
  2. SKYLA [Suspect]
     Active Substance: LEVONORGESTREL
     Indication: CONTRACEPTION
     Dosage: 14 MCG/24HR, CONT
     Route: 015
     Dates: start: 20190912

REACTIONS (5)
  - Haemorrhagic ovarian cyst [None]
  - Device dislocation [Not Recovered/Not Resolved]
  - Vaginal haemorrhage [None]
  - Device use issue [None]
  - Genital haemorrhage [None]

NARRATIVE: CASE EVENT DATE: 20190912
